FAERS Safety Report 21557087 (Version 2)
Quarter: 2022Q4

REPORT INFORMATION
  Report Type: Report from Study
  Country: US (occurrence: US)
  Receive Date: 20221104
  Receipt Date: 20221107
  Transmission Date: 20230113
  Serious: No
  Sender: FDA-Public Use
  Company Number: US-002147023-NVSC2022US249253

PATIENT
  Sex: Female

DRUGS (1)
  1. ENTRESTO [Suspect]
     Active Substance: SACUBITRIL\VALSARTAN
     Indication: Left ventricular failure
     Dosage: 1.5 DOSAGE FORM, BID (24/26MG 1 AND 1/2 TABLET TWICE DAILY)
     Route: 048
     Dates: start: 20220113

REACTIONS (1)
  - Wrong technique in product usage process [Unknown]
